FAERS Safety Report 18315355 (Version 1)
Quarter: 2020Q3

REPORT INFORMATION
  Report Type: Report from Study
  Country: CA (occurrence: CA)
  Receive Date: 20200926
  Receipt Date: 20200926
  Transmission Date: 20201103
  Serious: Yes (Hospitalization)
  Sender: FDA-Public Use
  Company Number: CA-ACCORD-202565

PATIENT
  Age: 33 Year
  Sex: Male

DRUGS (19)
  1. CORTIFOAM [Concomitant]
     Active Substance: HYDROCORTISONE ACETATE
     Dosage: AEROSOL, FOAM
  2. VENTOLIN [Concomitant]
     Active Substance: ALBUTEROL SULFATE
     Route: 050
  3. METHOTREXATE. [Suspect]
     Active Substance: METHOTREXATE
     Indication: PRODUCT USED FOR UNKNOWN INDICATION
     Dosage: 1 EVERY 1 WEEKS
     Route: 048
  4. APO?AZATHIOPRINE [Concomitant]
     Active Substance: AZATHIOPRINE
     Dosage: 1 EVERY 1 DAYS
  5. CALCIUM CARBONATE. [Concomitant]
     Active Substance: CALCIUM CARBONATE
     Dosage: 2 EVERY 1 DAYS
  6. MEZAVANT [Concomitant]
     Active Substance: MESALAMINE
     Dosage: 1 EVERY 1 DAYS, TABLET (DELAYED AND EXTENDED RELEASE)
     Route: 048
  7. ENTYVIO [Suspect]
     Active Substance: VEDOLIZUMAB
     Indication: COLITIS ULCERATIVE
     Dosage: POWDER FOR SOLUTION INTRAVENOUS, ALSO RECEIVED 300.0 MG
     Route: 042
  8. CALCIUM CITRATE [Concomitant]
     Active Substance: CALCIUM CITRATE
     Dosage: 2 EVERY 1 DAYS
  9. PLANTAGO OVATA [Concomitant]
     Active Substance: HERBALS\PLANTAGO OVATA LEAF
     Dosage: 1 EVERY 1 DAYS AND 2 EVERY 1 DAYS
     Route: 048
  10. CORTIMENT [Concomitant]
     Dosage: 1 EVERY 1 DAYS
  11. INFLIXIMAB [Concomitant]
     Active Substance: INFLIXIMAB
     Dosage: 1 EVERY 8 WEEKS
     Route: 042
  12. CODEINE/PARACETAMOL [Concomitant]
     Active Substance: ACETAMINOPHEN\CODEINE PHOSPHATE
     Dosage: 1 EVERY 8 HOURS
  13. FOLIC ACID. [Concomitant]
     Active Substance: FOLIC ACID
     Dosage: 1 EVERY 1 DAYS
     Route: 048
  14. HYDROCORTISONE. [Concomitant]
     Active Substance: HYDROCORTISONE
  15. LOPERAMIDE [Concomitant]
     Active Substance: LOPERAMIDE
     Dosage: 4 EVERY 1 DAYS
     Route: 048
  16. SALOFALK [Concomitant]
     Dosage: 1 EVERY 1 DAYS
  17. VITAMIN D NOS [Concomitant]
     Active Substance: VITAMIN D NOS
     Dosage: 1 EVERY 1 DAYS
     Route: 048
  18. APO?PREDNISONE [Concomitant]
     Active Substance: PREDNISONE
     Dosage: ALSO RECEIVED 20.0 MG 1 EVERY 1 DAYS
     Route: 048
  19. BETNESOL [Concomitant]

REACTIONS (4)
  - Colitis ulcerative [Unknown]
  - Dyspnoea [Unknown]
  - Alanine aminotransferase increased [Unknown]
  - Headache [Unknown]
